FAERS Safety Report 17431370 (Version 1)
Quarter: 2020Q1

REPORT INFORMATION
  Report Type: Spontaneous
  Country: CA (occurrence: CA)
  Receive Date: 20200218
  Receipt Date: 20200218
  Transmission Date: 20200409
  Serious: Yes (Hospitalization)
  Sender: FDA-Public Use
  Company Number: CA-TEVA-2020-CA-1185285

PATIENT
  Age: 15 Year
  Sex: Female
  Weight: 57 kg

DRUGS (10)
  1. GEMCITABINE. [Suspect]
     Active Substance: GEMCITABINE
     Indication: HODGKIN^S DISEASE
     Dosage: 2775 MG/M2 DAILY;
     Route: 042
  2. GEMCITABINE. [Suspect]
     Active Substance: GEMCITABINE
     Dosage: 1000 MG/M2 DAILY;
     Route: 042
  3. BRENTUXIMAB VEDOTIN [Concomitant]
     Active Substance: BRENTUXIMAB VEDOTIN
     Indication: PRODUCT USED FOR UNKNOWN INDICATION
     Route: 042
  4. GEMCITABINE. [Suspect]
     Active Substance: GEMCITABINE
     Dosage: 1000 MG/M2 DAILY;
     Route: 042
  5. GEMCITABINE. [Suspect]
     Active Substance: GEMCITABINE
     Dosage: 1000 MG/M2 DAILY;
     Route: 042
  6. BUSULFEX [Suspect]
     Active Substance: BUSULFAN
     Indication: HODGKIN^S DISEASE
     Dosage: 110 MG/M2 DAILY;
     Route: 042
  7. GEMCITABINE. [Suspect]
     Active Substance: GEMCITABINE
     Dosage: 1000 MG/M2 DAILY;
     Route: 042
  8. DEXAMETHASONE. [Concomitant]
     Active Substance: DEXAMETHASONE
     Indication: PRODUCT USED FOR UNKNOWN INDICATION
     Route: 065
  9. MELPHALAN. [Suspect]
     Active Substance: MELPHALAN
     Indication: HODGKIN^S DISEASE
     Dosage: 60 MG/M2 DAILY;
     Route: 042
  10. GEMCITABINE. [Suspect]
     Active Substance: GEMCITABINE
     Dosage: 2775 MG/M2 DAILY;
     Route: 042

REACTIONS (3)
  - Mucosal inflammation [Recovered/Resolved]
  - Condition aggravated [Recovered/Resolved]
  - Erythema [Recovered/Resolved]
